FAERS Safety Report 11088082 (Version 1)
Quarter: 2015Q2

REPORT INFORMATION
  Report Type: Spontaneous
  Country: US (occurrence: None)
  Receive Date: 20150501
  Receipt Date: 20150501
  Transmission Date: 20150821
  Serious: No
  Sender: FDA-Public Use
  Company Number: None

PATIENT
  Age: 25 Year
  Sex: Female
  Weight: 65.77 kg

DRUGS (4)
  1. HERBAL LIFE [Concomitant]
  2. LATUDA [Suspect]
     Active Substance: LURASIDONE HYDROCHLORIDE
     Dosage: 2 PILLS, ONCE DAILY, TAKEN BY MOM
     Route: 048
     Dates: start: 20150420, end: 20150430
  3. INTUNIVE [Concomitant]
  4. TRIADONE [Concomitant]

REACTIONS (6)
  - Emotional disorder [None]
  - Gait disturbance [None]
  - Abnormal behaviour [None]
  - Slow response to stimuli [None]
  - Weight increased [None]
  - Feeling abnormal [None]

NARRATIVE: CASE EVENT DATE: 20150417
